FAERS Safety Report 9993480 (Version 5)
Quarter: 2020Q3

REPORT INFORMATION
  Report Type: Report from Study
  Country: TR (occurrence: TR)
  Receive Date: 20140310
  Receipt Date: 20140408
  Transmission Date: 20201104
  Serious: Yes (Hospitalization)
  Sender: FDA-Public Use
  Company Number: TR-JNJFOC-20140301215

PATIENT
  Age: 69 Year
  Sex: Male
  Weight: 68.5 kg

DRUGS (61)
  1. URIKOLIZ [Concomitant]
     Active Substance: ALLOPURINOL
     Indication: PROPHYLAXIS
     Route: 048
  2. URIKOLIZ [Concomitant]
     Active Substance: ALLOPURINOL
     Indication: PREMEDICATION
     Dosage: 0.5 TABLET
     Route: 048
     Dates: start: 20130918
  3. DEMEPRAZOL [Concomitant]
     Indication: GASTROINTESTINAL DISORDER THERAPY
     Route: 048
  4. OROHEKS PLUS GARGARA [Concomitant]
     Indication: PERIODONTAL DISEASE
     Route: 061
  5. MAGNESIUM SULFATE. [Concomitant]
     Active Substance: MAGNESIUM SULFATE
     Indication: PROPHYLAXIS
     Route: 042
  6. DYGRATYL [Concomitant]
     Indication: PREMEDICATION
     Route: 042
  7. IBRUTINIB [Suspect]
     Active Substance: IBRUTINIB
     Indication: LYMPHOCYTIC LEUKAEMIA
     Route: 048
  8. IBRUTINIB [Suspect]
     Active Substance: IBRUTINIB
     Indication: LYMPHOCYTIC LEUKAEMIA
     Dosage: MEDICAL KIT NUMBER 68797
     Route: 048
     Dates: start: 20130905, end: 20140228
  9. IBRUTINIB [Suspect]
     Active Substance: IBRUTINIB
     Indication: CHRONIC LYMPHOCYTIC LEUKAEMIA
     Route: 048
  10. PAROL [Concomitant]
     Active Substance: ACETAMINOPHEN
     Indication: BREAST PAIN
     Dosage: 1 TABLET
     Route: 048
  11. DIAZEPAM. [Concomitant]
     Active Substance: DIAZEPAM
     Indication: PREMEDICATION
     Route: 048
     Dates: start: 20140212, end: 20140213
  12. DUOVEL [Concomitant]
     Indication: PREMEDICATION
     Route: 048
     Dates: start: 20140212, end: 20140213
  13. DUOVEL [Concomitant]
     Indication: PREMEDICATION
     Route: 048
  14. NAVOBAN [Concomitant]
     Active Substance: TROPISETRON HYDROCHLORIDE
     Indication: PREMEDICATION
     Route: 042
  15. CIPRO [Concomitant]
     Active Substance: CIPROFLOXACIN HYDROCHLORIDE
     Indication: PROPHYLAXIS
     Route: 048
  16. NEUPOGEN [Concomitant]
     Active Substance: FILGRASTIM
     Indication: PROPHYLAXIS
     Route: 058
     Dates: start: 20140216, end: 20140220
  17. BENEXOL B12 [Concomitant]
     Active Substance: METHYLCOBALAMIN
     Indication: NUTRITIONAL SUPPLEMENTATION
     Route: 048
  18. BENDAMUSTINE [Suspect]
     Active Substance: BENDAMUSTINE
     Indication: CHRONIC LYMPHOCYTIC LEUKAEMIA
     Dosage: MEDICAL KIT NUMBER 11535
     Route: 042
     Dates: start: 20130905
  19. URIKOLIZ [Concomitant]
     Active Substance: ALLOPURINOL
     Indication: PROPHYLAXIS
     Dosage: 0.5 TABLET
     Route: 048
     Dates: start: 20140212, end: 20140212
  20. DIAZEPAM. [Concomitant]
     Active Substance: DIAZEPAM
     Indication: PREMEDICATION
     Route: 048
  21. DEMEPRAZOL [Concomitant]
     Indication: GASTROINTESTINAL DISORDER THERAPY
     Route: 048
  22. AUGMENTIN [Concomitant]
     Active Substance: AMOXICILLIN\CLAVULANATE POTASSIUM
     Indication: PROPHYLAXIS
     Route: 048
  23. DEMEPRAZOL [Concomitant]
     Indication: PROPHYLAXIS AGAINST GASTROINTESTINAL ULCER
     Route: 048
  24. DEMEPRAZOL [Concomitant]
     Indication: PROPHYLAXIS AGAINST GASTROINTESTINAL ULCER
     Route: 048
  25. PRILOSEC [Concomitant]
     Active Substance: OMEPRAZOLE MAGNESIUM
     Indication: PREMEDICATION
     Route: 042
  26. GRATRYL [Concomitant]
     Indication: PREMEDICATION
     Route: 042
     Dates: start: 20140212, end: 20140213
  27. RITUXIMAB. [Suspect]
     Active Substance: RITUXIMAB
     Indication: LYMPHOCYTIC LEUKAEMIA
     Route: 042
     Dates: start: 20130904
  28. PAROL [Concomitant]
     Active Substance: ACETAMINOPHEN
     Indication: BREAST PAIN
     Route: 048
  29. PAROL [Concomitant]
     Active Substance: ACETAMINOPHEN
     Indication: PROPHYLAXIS
     Dosage: 1 TABLET
     Route: 048
  30. PAROL [Concomitant]
     Active Substance: ACETAMINOPHEN
     Indication: PROPHYLAXIS
     Route: 048
  31. PAROL [Concomitant]
     Active Substance: ACETAMINOPHEN
     Indication: PREMEDICATION
     Route: 048
     Dates: start: 20140214, end: 20140225
  32. PAROL [Concomitant]
     Active Substance: ACETAMINOPHEN
     Indication: PREMEDICATION
     Dosage: 1 TABLET
     Route: 048
  33. DEKORT [Concomitant]
     Active Substance: DEXAMETHASONE
     Indication: PREMEDICATION
     Route: 042
     Dates: start: 20140212, end: 20140212
  34. OROHEKS PLUS GARGARA [Concomitant]
     Indication: PERIODONTAL DISEASE
     Route: 061
  35. LEUCOSTIM [Concomitant]
     Indication: PROPHYLAXIS
     Route: 058
  36. METAMIDOL [Concomitant]
     Active Substance: DIAZEPAM
     Indication: PREMEDICATION
     Route: 048
  37. TYLOL?HOT [Concomitant]
     Indication: PREMEDICATION
     Route: 048
  38. BENDAMUSTINE [Suspect]
     Active Substance: BENDAMUSTINE
     Indication: LYMPHOCYTIC LEUKAEMIA
     Dosage: MEDICAL KIT NUMBER 11535
     Route: 042
     Dates: start: 20130905
  39. PAROL [Concomitant]
     Active Substance: ACETAMINOPHEN
     Indication: PREMEDICATION
     Route: 048
  40. SYSTRAL [Concomitant]
     Indication: PREMEDICATION
     Route: 042
  41. DEKORT [Concomitant]
     Active Substance: DEXAMETHASONE
     Indication: PREMEDICATION
     Route: 042
  42. URIKOLIZ [Concomitant]
     Active Substance: ALLOPURINOL
     Indication: PROPHYLAXIS
     Dosage: 0.5 TABLET
     Route: 048
     Dates: start: 20130918
  43. PANTPAS [Concomitant]
     Active Substance: PANTOPRAZOLE SODIUM
     Indication: PROPHYLAXIS AGAINST GASTROINTESTINAL ULCER
     Route: 042
  44. MIKOSTATIN [Concomitant]
     Active Substance: NYSTATIN
     Indication: PERIODONTAL DISEASE
     Dosage: 1 OTHER
     Route: 050
  45. AMLODIPINE [Concomitant]
     Active Substance: AMLODIPINE BESYLATE
     Indication: BREAST PAIN
     Route: 042
     Dates: start: 20140215, end: 20140225
  46. IBRUTINIB [Suspect]
     Active Substance: IBRUTINIB
     Indication: CHRONIC LYMPHOCYTIC LEUKAEMIA
     Dosage: MEDICAL KIT NUMBER 68797
     Route: 048
     Dates: start: 20130905, end: 20140228
  47. LEVONAT [Concomitant]
     Indication: INFECTION PROPHYLAXIS
     Route: 048
  48. NEUPOGEN [Concomitant]
     Active Substance: FILGRASTIM
     Indication: PROPHYLAXIS
     Dosage: 30000000 UNITS
     Route: 058
  49. TYLOL?HOT [Concomitant]
     Indication: PREMEDICATION
     Route: 048
     Dates: start: 20140212, end: 20140212
  50. RITUXIMAB. [Suspect]
     Active Substance: RITUXIMAB
     Indication: CHRONIC LYMPHOCYTIC LEUKAEMIA
     Route: 042
     Dates: start: 20130904
  51. PAROL [Concomitant]
     Active Substance: ACETAMINOPHEN
     Indication: PROPHYLAXIS
     Route: 048
     Dates: start: 20140214, end: 20140225
  52. URIKOLIZ [Concomitant]
     Active Substance: ALLOPURINOL
     Indication: PREMEDICATION
     Dosage: 0.5 TABLET
     Route: 048
     Dates: start: 20140212, end: 20140212
  53. URIKOLIZ [Concomitant]
     Active Substance: ALLOPURINOL
     Indication: PREMEDICATION
     Route: 048
  54. FORTIMEL [Concomitant]
     Indication: NUTRITIONAL SUPPLEMENTATION
     Route: 048
  55. DUROGESIC [Concomitant]
     Active Substance: FENTANYL
     Indication: BREAST PAIN
     Dates: start: 20140225
  56. MOLIT PLUS [Concomitant]
     Indication: BREAST PAIN
     Route: 042
     Dates: start: 20140213, end: 20140213
  57. PULCET [Concomitant]
     Indication: GASTROINTESTINAL DISORDER THERAPY
     Route: 048
  58. ALYSE [Concomitant]
     Indication: BURNING SENSATION
     Route: 048
     Dates: end: 20131219
  59. VASOSERC [Concomitant]
     Indication: DIZZINESS
     Route: 048
  60. PAROL [Concomitant]
     Active Substance: ACETAMINOPHEN
     Indication: BREAST PAIN
     Route: 048
     Dates: start: 20140214, end: 20140225
  61. SYSTRAL [Concomitant]
     Indication: PREMEDICATION
     Route: 042
     Dates: start: 20140212, end: 20140213

REACTIONS (1)
  - Neuropathy peripheral [Recovered/Resolved]

NARRATIVE: CASE EVENT DATE: 20140301
